FAERS Safety Report 8138033-4 (Version None)
Quarter: 2012Q1

REPORT INFORMATION
  Report Type: 
  Country: None (occurrence: None)
  Receive Date: 20120215
  Receipt Date: 20120210
  Transmission Date: 20120608
  Serious: Yes (Other)
  Sender: FDA-Public Use
  Company Number: US-PFIZER INC-2012037295

PATIENT
  Sex: Female
  Weight: 113 kg

DRUGS (5)
  1. GLIMEPIRIDE [Concomitant]
     Indication: DIABETES MELLITUS
     Dosage: UNK
  2. JANUVIA [Concomitant]
     Indication: DIABETES MELLITUS
     Dosage: UNK
  3. PIOGLITAZONE HYDROCHLORIDE/METFORMIN HYDROCHLORIDE [Concomitant]
     Indication: DIABETES MELLITUS
     Dosage: UNK
  4. DETROL LA [Suspect]
     Dosage: 2 MG, DAILY
  5. DETROL LA [Suspect]
     Indication: BLADDER PROLAPSE
     Dosage: 4 MG, DAILY

REACTIONS (3)
  - URINARY INCONTINENCE [None]
  - DRUG INEFFECTIVE [None]
  - BREAST CANCER FEMALE [None]
